FAERS Safety Report 8193645-7 (Version None)
Quarter: 2012Q1

REPORT INFORMATION
  Report Type: 
  Country: None (occurrence: None)
  Receive Date: 20120308
  Receipt Date: 20120228
  Transmission Date: 20120608
  Serious: Yes (Other)
  Sender: FDA-Public Use
  Company Number: CA-JNJFOC-20120214615

PATIENT
  Sex: Female
  Weight: 74 kg

DRUGS (6)
  1. METHADON HCL TAB [Concomitant]
     Route: 065
  2. LAMOTRIGINE [Concomitant]
     Dosage: 8 WEEKS (TREATMENT)
     Route: 065
  3. REMICADE [Suspect]
     Indication: CROHN'S DISEASE
     Route: 042
     Dates: start: 20080101
  4. LAMOTRIGINE [Concomitant]
     Route: 065
  5. LORAZEPAM [Concomitant]
     Route: 065
  6. NAPROXEN [Concomitant]
     Route: 065

REACTIONS (3)
  - CROHN'S DISEASE [None]
  - EPILEPSY [None]
  - JOINT INJURY [None]
